FAERS Safety Report 5563195-2 (Version None)
Quarter: 2007Q4

REPORT INFORMATION
  Report Type: 
  Country: None (occurrence: None)
  Receive Date: 20071217
  Receipt Date: 20071210
  Transmission Date: 20080405
  Serious: Yes (Other)
  Sender: FDA-Public Use
  Company Number: US-JNJFOC-20071203327

PATIENT
  Age: 65 Year
  Sex: Male
  Weight: 81.65 kg

DRUGS (2)
  1. LEVAQUIN [Suspect]
     Indication: INFLUENZA LIKE ILLNESS
     Route: 048
  2. ASPIRIN [Concomitant]
     Route: 048

REACTIONS (4)
  - ANAEMIA [None]
  - HEADACHE [None]
  - NAUSEA [None]
  - THYROID FUNCTION TEST ABNORMAL [None]
